FAERS Safety Report 4833355-4 (Version None)
Quarter: 2005Q4

REPORT INFORMATION
  Report Type: 
  Country: None (occurrence: None)
  Receive Date: 20051117
  Receipt Date: 20051109
  Transmission Date: 20060501
  Serious: Yes (Other)
  Sender: FDA-Public Use
  Company Number: 2005153733

PATIENT
  Age: 62 Year
  Sex: Male
  Weight: 80 kg

DRUGS (2)
  1. ATORVASTATIN CALCIUM [Suspect]
     Indication: ILL-DEFINED DISORDER
     Dosage: 40 MG), ORAL
     Route: 048
     Dates: start: 20051017
  2. OMEPRAZOLE [Concomitant]

REACTIONS (3)
  - BLOOD BILIRUBIN INCREASED [None]
  - MEMORY IMPAIRMENT [None]
  - THOUGHT BLOCKING [None]
